FAERS Safety Report 8462641-4 (Version None)
Quarter: 2012Q2

REPORT INFORMATION
  Report Type: 
  Country: None (occurrence: None)
  Receive Date: 20120619
  Receipt Date: 20120619
  Transmission Date: 20120825
  Serious: Yes (Hospitalization)
  Sender: FDA-Public Use
  Company Number: None

PATIENT
  Age: 53 Year
  Sex: Male
  Weight: 83 kg

DRUGS (1)
  1. LENALIDOMIDE [Suspect]
     Indication: CHRONIC LYMPHOCYTIC LEUKAEMIA
     Dosage: 5 MG, DAILY, PO
     Route: 048
     Dates: start: 20120331, end: 20120608

REACTIONS (7)
  - PNEUMONIA [None]
  - DIZZINESS [None]
  - CHRONIC SINUSITIS [None]
  - LUNG CONSOLIDATION [None]
  - SINUS HEADACHE [None]
  - RESPIROVIRUS TEST POSITIVE [None]
  - LUNG NEOPLASM [None]
